FAERS Safety Report 4485180-4 (Version None)
Quarter: 2004Q4

REPORT INFORMATION
  Report Type: 
  Country: None (occurrence: None)
  Receive Date: 20041026
  Receipt Date: 20040301
  Transmission Date: 20050328
  Serious: No
  Sender: FDA-Public Use
  Company Number: US-BRISTOL-MYERS SQUIBB COMPANY-12520664

PATIENT
  Age: 53 Year
  Sex: Female
  Weight: 91 kg

DRUGS (7)
  1. GLUCOPHAGE XR [Suspect]
     Indication: DIABETES MELLITUS
     Route: 048
     Dates: start: 20040101
  2. AMARYL [Concomitant]
  3. ADVAIR DISKUS 100/50 [Concomitant]
  4. CELEBREX [Concomitant]
  5. SINGULAIR [Concomitant]
  6. CLARITIN [Concomitant]
  7. ALBUTEROL [Concomitant]

REACTIONS (1)
  - BLOOD GLUCOSE INCREASED [None]
